FAERS Safety Report 24183126 (Version 1)
Quarter: 2024Q3

REPORT INFORMATION
  Report Type: Spontaneous
  Country: US (occurrence: None)
  Receive Date: 20240806
  Receipt Date: 20240806
  Transmission Date: 20241017
  Serious: No
  Sender: Public
  Company Number: None

PATIENT
  Sex: 0

DRUGS (1)
  1. TECFIDERA [Suspect]
     Active Substance: DIMETHYL FUMARATE

REACTIONS (5)
  - Balance disorder [None]
  - Balance disorder [None]
  - Stress [None]
  - Adverse drug reaction [None]
  - Sensitivity to weather change [None]

NARRATIVE: CASE EVENT DATE: 20240805
